FAERS Safety Report 17941108 (Version 1)
Quarter: 2020Q2

REPORT INFORMATION
  Report Type: Spontaneous
  Country: US (occurrence: US)
  Receive Date: 20200624
  Receipt Date: 20200624
  Transmission Date: 20200714
  Serious: Yes (Other)
  Sender: FDA-Public Use
  Company Number: None

PATIENT
  Age: 54 Year
  Sex: Female
  Weight: 64.1 kg

DRUGS (7)
  1. ENOXAPARIN 40MG QHS AND 30MG BID [Concomitant]
     Dates: start: 20200615, end: 20200623
  2. DEXAMETHASONE 6MG PO DAILY [Concomitant]
     Dates: start: 20200618, end: 20200622
  3. ACETAMINOPHEN 650MG PO Q6H PAIN 1-3, FEVER [Concomitant]
     Dates: start: 20200614, end: 20200623
  4. REMDESIVIR. [Suspect]
     Active Substance: REMDESIVIR
     Indication: COVID-19
     Dosage: ?          OTHER FREQUENCY:200MG D1, 100MG/D;?
     Route: 042
     Dates: start: 20200615, end: 20200619
  5. AZITHROMYCIN 500MG IV DAILY [Concomitant]
     Dates: start: 20200614, end: 20200615
  6. CEFTRIAXONE 1G IV DAILY [Concomitant]
     Dates: start: 20200614, end: 20200615
  7. ROBITUSSIN DM 5ML PO Q4H PRN [Concomitant]
     Dates: start: 20200615, end: 20200623

REACTIONS (1)
  - Platelet count increased [None]

NARRATIVE: CASE EVENT DATE: 20200620
